FAERS Safety Report 7392734-4 (Version None)
Quarter: 2011Q1

REPORT INFORMATION
  Report Type: 
  Country: None (occurrence: None)
  Receive Date: 20110330
  Receipt Date: 20110330
  Transmission Date: 20110831
  Serious: Yes (Life-Threatening)
  Sender: FDA-Public Use
  Company Number: None

PATIENT
  Sex: Male

DRUGS (1)
  1. NITROGLYCERIN [Suspect]
     Indication: ANGINA PECTORIS

REACTIONS (2)
  - MIGRAINE [None]
  - VISION BLURRED [None]
